FAERS Safety Report 6201169-9 (Version None)
Quarter: 2009Q2

REPORT INFORMATION
  Report Type: 
  Country: None (occurrence: None)
  Receive Date: 20090526
  Receipt Date: 20090519
  Transmission Date: 20091009
  Serious: No
  Sender: FDA-Public Use
  Company Number: US-JNJFOC-20090505018

PATIENT
  Sex: Female
  Weight: 113.4 kg

DRUGS (9)
  1. DURAGESIC-100 [Suspect]
     Indication: PAIN
     Route: 062
  2. SYNTHROID [Concomitant]
     Indication: THYROID DISORDER
     Route: 048
  3. WELLBUTRIN [Concomitant]
     Indication: DEPRESSION
     Route: 048
  4. BUSPAR [Concomitant]
     Indication: DEPRESSION
     Route: 048
  5. XANAX [Concomitant]
     Indication: ANXIETY
     Route: 048
  6. PROTONIX [Concomitant]
     Indication: GASTRIC DISORDER
     Route: 048
  7. BENTYL [Concomitant]
     Indication: GASTRIC DISORDER
     Route: 048
  8. JANUVIA [Concomitant]
     Indication: DIABETES MELLITUS
     Route: 048
  9. LORCET-HD [Concomitant]
     Indication: PAIN
     Route: 048

REACTIONS (4)
  - DRUG ADMINISTERED AT INAPPROPRIATE SITE [None]
  - INAPPROPRIATE SCHEDULE OF DRUG ADMINISTRATION [None]
  - MIGRAINE [None]
  - WEIGHT DECREASED [None]
